FAERS Safety Report 9165914 (Version 3)
Quarter: 2013Q2

REPORT INFORMATION
  Report Type: Spontaneous
  Country: JP (occurrence: JP)
  Receive Date: 20130315
  Receipt Date: 20130502
  Transmission Date: 20140414
  Serious: Yes (Death, Other)
  Sender: FDA-Public Use
  Company Number: JP-ROCHE-1200964

PATIENT
  Age: 55 Year
  Sex: Female
  Weight: 71 kg

DRUGS (7)
  1. XELODA [Suspect]
     Indication: COLON CANCER RECURRENT
     Dosage: 2 WEEKS ADMINISTRATION FOLLOWED BY 1 WEEK REST
     Route: 048
     Dates: start: 20100218, end: 20100615
  2. XELODA [Suspect]
     Indication: COLON CANCER RECURRENT
     Dosage: 2 WEEKS ADMINISTRATION FOLLOWED BY 1 WEEK REST
     Route: 048
     Dates: start: 20100630, end: 20130220
  3. AVASTIN [Suspect]
     Indication: COLON CANCER RECURRENT
     Route: 041
     Dates: start: 20110914, end: 20130206
  4. ELPLAT [Concomitant]
     Indication: COLON CANCER RECURRENT
     Dosage: DOSAGE IS UNCERTAIN
     Route: 041
     Dates: start: 20100218, end: 20110809
  5. ELPLAT [Concomitant]
     Indication: COLON CANCER RECURRENT
     Route: 041
     Dates: start: 20110914, end: 20111019
  6. ELPLAT [Concomitant]
     Indication: COLON CANCER RECURRENT
     Route: 041
     Dates: start: 20111214, end: 20111214
  7. ELPLAT [Concomitant]
     Indication: COLON CANCER RECURRENT
     Route: 041
     Dates: start: 20120418, end: 20130114

REACTIONS (4)
  - Gastrointestinal perforation [Fatal]
  - Sepsis [Fatal]
  - Pneumonia [Not Recovered/Not Resolved]
  - Palmar-plantar erythrodysaesthesia syndrome [Recovering/Resolving]
